FAERS Safety Report 4408431-0 (Version None)
Quarter: 2004Q3

REPORT INFORMATION
  Report Type: 
  Country: None (occurrence: None)
  Receive Date: 20040726
  Receipt Date: 20040719
  Transmission Date: 20050211
  Serious: Yes (Death, Hospitalization)
  Sender: FDA-Public Use
  Company Number: 2004UW12532

PATIENT
  Age: 59 Year
  Sex: Male

DRUGS (7)
  1. CRESTOR [Suspect]
     Indication: BLOOD CHOLESTEROL INCREASED
     Dosage: 10 MG QD PO
     Dates: start: 20031015, end: 20040301
  2. FUROSEMIDE [Concomitant]
  3. OMEPRAZOLE [Concomitant]
  4. SPIRONOLACTONE [Concomitant]
  5. DOMPERIDONE [Concomitant]
  6. PREDNISONE [Concomitant]
  7. LACTULOSE [Concomitant]

REACTIONS (11)
  - ASCITES [None]
  - AUTOIMMUNE HEPATITIS [None]
  - ENCEPHALOPATHY [None]
  - HEPATIC FAILURE [None]
  - HEPATIC NEOPLASM [None]
  - HEPATIC STEATOSIS [None]
  - HEPATITIS ACUTE [None]
  - OESOPHAGEAL VARICES HAEMORRHAGE [None]
  - PANCREATITIS [None]
  - PLEURAL EFFUSION [None]
  - POST PROCEDURAL COMPLICATION [None]
